FAERS Safety Report 24687332 (Version 1)
Quarter: 2024Q4

REPORT INFORMATION
  Report Type: Spontaneous
  Country: US (occurrence: None)
  Receive Date: 20241201
  Receipt Date: 20241201
  Transmission Date: 20250114
  Serious: Yes (Life-Threatening, Disabling, Other)
  Sender: Public
  Company Number: None

PATIENT
  Age: 27 Year
  Sex: Male
  Weight: 82.35 kg

DRUGS (1)
  1. FINASTERIDE [Suspect]
     Active Substance: FINASTERIDE

REACTIONS (6)
  - Semen liquefaction [None]
  - Libido decreased [None]
  - Erectile dysfunction [None]
  - Sexual dysfunction [None]
  - Anhedonia [None]
  - Orgasm abnormal [None]
